FAERS Safety Report 5752319-X (Version None)
Quarter: 2008Q2

REPORT INFORMATION
  Report Type: 
  Country: None (occurrence: None)
  Receive Date: 20080529
  Receipt Date: 20080523
  Transmission Date: 20081010
  Serious: Yes (Other)
  Sender: FDA-Public Use
  Company Number: US-ASTRAZENECA-2007UW17785

PATIENT
  Age: 41 Year
  Sex: Female
  Weight: 77.1 kg

DRUGS (4)
  1. SEROQUEL [Suspect]
     Indication: MAJOR DEPRESSION
     Route: 048
  2. SEROQUEL [Suspect]
     Indication: ANXIETY
     Route: 048
  3. THYROID TAB [Concomitant]
     Route: 048
  4. LEXAPRO [Concomitant]
     Route: 048

REACTIONS (6)
  - ADRENAL INSUFFICIENCY [None]
  - BLOOD CORTICOTROPHIN DECREASED [None]
  - BLOOD CORTISOL ABNORMAL [None]
  - DEHYDROEPIANDROSTERONE TEST [None]
  - POTENTIATING DRUG INTERACTION [None]
  - UTERINE LEIOMYOMA [None]
